FAERS Safety Report 7371520-5 (Version None)
Quarter: 2011Q1

REPORT INFORMATION
  Report Type: 
  Country: None (occurrence: None)
  Receive Date: 20110322
  Receipt Date: 20110322
  Transmission Date: 20110831
  Serious: Yes (Life-Threatening, Hospitalization, Disabling, Other)
  Sender: FDA-Public Use
  Company Number: None

PATIENT
  Age: 18 Year
  Sex: Male
  Weight: 52.1637 kg

DRUGS (2)
  1. PREDNISONE 60MG'S [Suspect]
     Indication: PHARYNGEAL OEDEMA
     Dosage: 60MG'S IV FIRST DOSE 1 TIME IV
     Route: 042
     Dates: start: 20110316, end: 20110316
  2. PREDNISONE [Suspect]
     Dosage: 20MG'S 4X'S DAY PO
     Route: 048
     Dates: start: 20110317, end: 20110318

REACTIONS (21)
  - ANXIETY [None]
  - PARAESTHESIA [None]
  - THROAT TIGHTNESS [None]
  - GASTROINTESTINAL DISORDER [None]
  - DYSPHAGIA [None]
  - HEART RATE INCREASED [None]
  - GASTROOESOPHAGEAL REFLUX DISEASE [None]
  - GASTROINTESTINAL PAIN [None]
  - CHEST PAIN [None]
  - FEELING ABNORMAL [None]
  - LARYNGEAL OEDEMA [None]
  - DIARRHOEA [None]
  - PAIN [None]
  - PALPITATIONS [None]
  - NERVOUSNESS [None]
  - PHARYNGITIS [None]
  - OROPHARYNGEAL PAIN [None]
  - HYPERHIDROSIS [None]
  - CHEST DISCOMFORT [None]
  - THROAT IRRITATION [None]
  - DYSPEPSIA [None]
